FAERS Safety Report 15933132 (Version 1)
Quarter: 2019Q1

REPORT INFORMATION
  Report Type: Report from Study
  Country: IT (occurrence: IT)
  Receive Date: 20190207
  Receipt Date: 20190207
  Transmission Date: 20190417
  Serious: Yes (Other)
  Sender: FDA-Public Use
  Company Number: IT-PFIZER INC-2019048095

PATIENT
  Age: 59 Year
  Sex: Female
  Weight: 60 kg

DRUGS (3)
  1. ENDOXAN-BAXTER [Concomitant]
     Active Substance: CYCLOPHOSPHAMIDE
     Dosage: 1014 MG, UNK
     Route: 040
     Dates: start: 20181002
  2. FLUOROURACILE AHCL [Concomitant]
     Active Substance: FLUOROURACIL
     Dosage: 1014 MG, UNK
     Route: 040
     Dates: start: 20181002
  3. FARMORUBICINA [Suspect]
     Active Substance: EPIRUBICIN HYDROCHLORIDE
     Indication: BREAST CANCER
     Dosage: 152.1 MG, CYCLIC
     Route: 040
     Dates: start: 20181002

REACTIONS (1)
  - Hepatotoxicity [Unknown]

NARRATIVE: CASE EVENT DATE: 20181211
